FAERS Safety Report 6713924-7 (Version None)
Quarter: 2010Q2

REPORT INFORMATION
  Report Type: 
  Country: None (occurrence: None)
  Receive Date: 20100504
  Receipt Date: 20100421
  Transmission Date: 20101027
  Serious: Yes (Death, Hospitalization)
  Sender: FDA-Public Use
  Company Number: MSTR-NO-1004S-0120

PATIENT
  Age: 75 Year
  Sex: Male

DRUGS (1)
  1. METASTRON [Suspect]
     Indication: METASTATIC PAIN
     Dosage: 116 MGQ, SINGLE DOSE, I.V.
     Route: 042
     Dates: start: 20100312, end: 20100312

REACTIONS (2)
  - PLATELET COUNT DECREASED [None]
  - PULMONARY HAEMORRHAGE [None]
